FAERS Safety Report 6040669-1 (Version None)
Quarter: 2009Q1

REPORT INFORMATION
  Report Type: 
  Country: None (occurrence: None)
  Receive Date: 20090116
  Receipt Date: 20080501
  Transmission Date: 20090719
  Serious: No
  Sender: FDA-Public Use
  Company Number: US-BRISTOL-MYERS SQUIBB COMPANY-14173421

PATIENT
  Age: 56 Year
  Sex: Male
  Weight: 193 kg

DRUGS (6)
  1. ABILIFY [Suspect]
     Indication: SUICIDAL IDEATION
     Dates: start: 20080301, end: 20080401
  2. SERZONE [Concomitant]
  3. ATIVAN [Concomitant]
  4. TIAZAC [Concomitant]
  5. ASPIRIN [Concomitant]
  6. RESTASIS [Concomitant]

REACTIONS (5)
  - DISTURBANCE IN ATTENTION [None]
  - INSOMNIA [None]
  - MYALGIA [None]
  - OEDEMA PERIPHERAL [None]
  - TREMOR [None]
